FAERS Safety Report 8575860-3 (Version None)
Quarter: 2012Q3

REPORT INFORMATION
  Report Type: 
  Country: None (occurrence: None)
  Receive Date: 20120807
  Receipt Date: 20120727
  Transmission Date: 20120928
  Serious: Yes (Other)
  Sender: FDA-Public Use
  Company Number: BR-AMGEN-BRASP2012048633

PATIENT
  Age: 69 Year
  Sex: Female

DRUGS (5)
  1. ATACAND [Concomitant]
     Dosage: UNK UNK, UNK
  2. ENBREL [Suspect]
     Indication: RHEUMATOID ARTHRITIS
     Dosage: 50 MG, ONCE WEEKLY
     Route: 058
     Dates: start: 20120201, end: 20120401
  3. HUMIRA [Concomitant]
     Dosage: UNK UNK, UNK
  4. OMEGA 3                            /01334101/ [Concomitant]
     Dosage: UNK UNK, UNK
  5. CALCIUM [Concomitant]
     Dosage: UNK UNK, UNK

REACTIONS (1)
  - IMMUNODEFICIENCY [None]
